FAERS Safety Report 5452291-6 (Version None)
Quarter: 2007Q3

REPORT INFORMATION
  Report Type: 
  Country: None (occurrence: None)
  Receive Date: 20070912
  Receipt Date: 20070912
  Transmission Date: 20080115
  Serious: No
  Sender: FDA-Public Use
  Company Number: None

PATIENT
  Age: 29 Year
  Sex: Male
  Weight: 90.7194 kg

DRUGS (1)
  1. ZOLOFT [Suspect]
     Indication: ANXIETY
     Dosage: 1 1/2 TABLETS ONE A DAY ENDOCERVICA
     Route: 005
     Dates: start: 20060808, end: 20060908

REACTIONS (1)
  - LIBIDO DECREASED [None]
